FAERS Safety Report 5689995-6 (Version None)
Quarter: 2008Q2

REPORT INFORMATION
  Report Type: 
  Country: None (occurrence: None)
  Receive Date: 20080401
  Receipt Date: 20071004
  Transmission Date: 20081010
  Serious: No
  Sender: FDA-Public Use
  Company Number: A0686130A

PATIENT
  Age: 74 Year
  Sex: Female

DRUGS (4)
  1. FLOVENT [Suspect]
     Indication: CHRONIC OBSTRUCTIVE PULMONARY DISEASE
     Dosage: 2PUFF TWICE PER DAY
     Route: 055
     Dates: start: 19920101
  2. PLAVIX [Concomitant]
  3. ACIPHEX [Concomitant]
  4. ACIDOPHILIS [Concomitant]

REACTIONS (1)
  - RESORPTION BONE INCREASED [None]
